FAERS Safety Report 12463558 (Version 1)
Quarter: 2016Q2

REPORT INFORMATION
  Report Type: Spontaneous
  Country: US (occurrence: None)
  Receive Date: 20160613
  Receipt Date: 20160613
  Transmission Date: 20160815
  Serious: No
  Sender: FDA-Public Use
  Company Number: None

PATIENT
  Age: 45 Year
  Sex: Male
  Weight: 109.9 kg

DRUGS (1)
  1. IPRATROPIUM [Suspect]
     Active Substance: IPRATROPIUM
     Indication: HYPERSENSITIVITY
     Route: 045
     Dates: start: 20160322, end: 20160324

REACTIONS (3)
  - Rash [None]
  - Urticaria [None]
  - Pruritus [None]

NARRATIVE: CASE EVENT DATE: 20160325
